FAERS Safety Report 20720894 (Version 1)
Quarter: 2022Q2

REPORT INFORMATION
  Report Type: Spontaneous
  Country: US (occurrence: None)
  Receive Date: 20220415
  Receipt Date: 20220415
  Transmission Date: 20220721
  Serious: No
  Sender: FDA-Public Use
  Company Number: None

PATIENT
  Age: 31 Year
  Sex: Male
  Weight: 101.7 kg

DRUGS (2)
  1. AMPHETAMINE ASPARTATE\DEXTROAMPHETAMINE SACCHARATE [Suspect]
     Active Substance: AMPHETAMINE ASPARTATE\DEXTROAMPHETAMINE SACCHARATE
     Indication: Attention deficit hyperactivity disorder
     Dosage: OTHER QUANTITY : 1 CAPSULE(S);?FREQUENCY : TWICE A DAY;?
     Route: 048
     Dates: start: 20220415, end: 20220415
  2. ADDERALL [Concomitant]

REACTIONS (7)
  - Product substitution issue [None]
  - Feeling abnormal [None]
  - Nausea [None]
  - Decreased appetite [None]
  - Tremor [None]
  - Dizziness [None]
  - Disturbance in attention [None]

NARRATIVE: CASE EVENT DATE: 20220415
